FAERS Safety Report 6386484-0 (Version None)
Quarter: 2009Q4

REPORT INFORMATION
  Report Type: 
  Country: None (occurrence: None)
  Receive Date: 20091002
  Receipt Date: 20090625
  Transmission Date: 20100525
  Serious: No
  Sender: FDA-Public Use
  Company Number: US-ASTRAZENECA-2009UW17625

PATIENT
  Age: 81 Year
  Sex: Female
  Weight: 77.6 kg

DRUGS (4)
  1. ARIMIDEX [Suspect]
     Route: 048
     Dates: end: 20090601
  2. RANITIDINE [Concomitant]
  3. OMEPRAZOLE [Concomitant]
     Route: 048
  4. EYE GTTS [Concomitant]

REACTIONS (4)
  - INSOMNIA [None]
  - NEUROPATHY PERIPHERAL [None]
  - PAIN [None]
  - URINARY TRACT INFECTION [None]
